FAERS Safety Report 8155211-9 (Version None)
Quarter: 2012Q1

REPORT INFORMATION
  Report Type: 
  Country: None (occurrence: None)
  Receive Date: 20120222
  Receipt Date: 20120213
  Transmission Date: 20120608
  Serious: Yes (Death)
  Sender: FDA-Public Use
  Company Number: US-BIOGENIDEC-2011BI030301

PATIENT
  Age: 47 Year
  Sex: Female

DRUGS (12)
  1. IMIPRAMINE [Concomitant]
     Indication: BLADDER DYSFUNCTION
  2. FOSAMAX [Concomitant]
     Indication: OSTEOPENIA
  3. IMIPRAMINE [Concomitant]
  4. VITAMIN D [Concomitant]
     Indication: VITAMIN D DEFICIENCY
  5. PROVENTIL [Concomitant]
     Indication: ASTHMA
  6. TYSABRI [Suspect]
     Indication: MULTIPLE SCLEROSIS
     Route: 042
     Dates: start: 20110806, end: 20110806
  7. ULTRACET [Concomitant]
     Indication: PAIN IN EXTREMITY
  8. ESTRADIOL [Concomitant]
     Indication: HORMONE REPLACEMENT THERAPY
  9. CLONAZEPAM [Concomitant]
     Indication: ANXIETY
  10. PROVENTIL [Concomitant]
     Indication: BRONCHITIS
  11. LUNESTA [Concomitant]
     Indication: SEDATIVE THERAPY
  12. FOLIC ACID [Concomitant]

REACTIONS (3)
  - SUDDEN CARDIAC DEATH [None]
  - ANAPHYLACTIC REACTION [None]
  - ARTERIOSCLEROSIS [None]
